APPROVED DRUG PRODUCT: FEBUXOSTAT
Active Ingredient: FEBUXOSTAT
Strength: 40MG
Dosage Form/Route: TABLET;ORAL
Application: A206266 | Product #001 | TE Code: AB
Applicant: PRINSTON PHARMACEUTICAL INC
Approved: Mar 28, 2022 | RLD: No | RS: No | Type: RX